FAERS Safety Report 11152187 (Version 5)
Quarter: 2016Q3

REPORT INFORMATION
  Report Type: Spontaneous
  Country: US (occurrence: US)
  Receive Date: 20150601
  Receipt Date: 20160823
  Transmission Date: 20161109
  Serious: No
  Sender: FDA-Public Use
  Company Number: US-PFIZER INC-2015176441

PATIENT
  Age: 50 Year
  Sex: Female
  Weight: 117 kg

DRUGS (4)
  1. HYDROCORTISONE. [Suspect]
     Active Substance: HYDROCORTISONE
     Dosage: UNK
  2. HYDROCORTISONE. [Suspect]
     Active Substance: HYDROCORTISONE
     Indication: ADRENAL INSUFFICIENCY
     Dosage: 5 MG, 4X/DAY
     Route: 048
     Dates: start: 201505
  3. HYDROCORTISONE. [Suspect]
     Active Substance: HYDROCORTISONE
     Dosage: UNK
  4. NATURE-THROID [Concomitant]
     Active Substance: THYROID, PORCINE
     Indication: THYROID DISORDER
     Dosage: 3 DF, DAILY (3 GRAINS A DAY)

REACTIONS (21)
  - Body temperature decreased [Recovered/Resolved]
  - Pain [Unknown]
  - Swelling [Recovered/Resolved]
  - Drug ineffective [Unknown]
  - Reaction to drug excipients [Unknown]
  - Breast pain [Recovered/Resolved]
  - Head discomfort [Recovered/Resolved]
  - Homicidal ideation [Recovered/Resolved]
  - Product quality issue [Unknown]
  - Constipation [Recovered/Resolved]
  - Abdominal pain upper [Unknown]
  - Poor quality sleep [Recovered/Resolved]
  - Serum serotonin decreased [Recovered/Resolved]
  - Weight increased [Recovering/Resolving]
  - Paraesthesia oral [Recovered/Resolved]
  - Breast discomfort [Recovered/Resolved]
  - Irritability [Recovered/Resolved]
  - Breast swelling [Recovered/Resolved]
  - Endocrine disorder [Recovered/Resolved]
  - Psychomotor hyperactivity [Recovered/Resolved]
  - Poor quality drug administered [Unknown]
